FAERS Safety Report 7610651-9 (Version None)
Quarter: 2011Q3

REPORT INFORMATION
  Report Type: 
  Country: None (occurrence: None)
  Receive Date: 20110715
  Receipt Date: 20110707
  Transmission Date: 20111222
  Serious: Yes (Other)
  Sender: FDA-Public Use
  Company Number: JP-BAYER-200912684BYL

PATIENT
  Age: 76 Year
  Sex: Male
  Weight: 57 kg

DRUGS (7)
  1. SORAFENIB (RAF KINASE INHIBITOR) [Suspect]
     Indication: HEPATIC NEOPLASM MALIGNANT NON-RESECTABLE
     Dosage: 400 MG, BID
     Route: 048
     Dates: start: 20090705, end: 20090711
  2. EVAMYL [Concomitant]
     Indication: PROPHYLAXIS
     Route: 048
  3. MAGNESIUM OXIDE [Concomitant]
     Indication: CONSTIPATION PROPHYLAXIS
     Dosage: STARTED BEFORE NEXAVAR ADIMINISTRATION
     Route: 048
  4. GLAKAY [Concomitant]
     Indication: HAEMORRHAGE PROPHYLAXIS
     Dosage: STARTED BEFORE NEXAVAR ADIMINISTRATION
     Route: 048
  5. UROCALUN [Concomitant]
     Dosage: STARTED BEFORE NEXAVAR ADIMINISTRATION
     Route: 048
  6. URSO 250 [Concomitant]
     Dosage: STARTED BEFORE NEXAVAR ADIMINISTRATION
     Route: 048
  7. JUZENTAIHOTO [Concomitant]
     Indication: PROPHYLAXIS
     Dosage: STARTED BEFORE NEXAVAR ADMINISTRATION
     Route: 048

REACTIONS (3)
  - PALMAR-PLANTAR ERYTHRODYSAESTHESIA SYNDROME [None]
  - HYPERTENSION [None]
  - HEPATIC ENCEPHALOPATHY [None]
